FAERS Safety Report 15200811 (Version 1)
Quarter: 2018Q3

REPORT INFORMATION
  Report Type: Report from Study
  Country: ES (occurrence: ES)
  Receive Date: 20180726
  Receipt Date: 20180726
  Transmission Date: 20181010
  Serious: Yes (Death, Other)
  Sender: FDA-Public Use
  Company Number: ES-SA-2017SA196930

PATIENT
  Age: 83 Year
  Sex: Male

DRUGS (1)
  1. INSULIN GLARGINE [Suspect]
     Active Substance: INSULIN GLARGINE
     Indication: TYPE 2 DIABETES MELLITUS
     Dosage: 23 IU,QD
     Route: 058

REACTIONS (3)
  - Decreased appetite [Not Recovered/Not Resolved]
  - Condition aggravated [Fatal]
  - Bedridden [Unknown]

NARRATIVE: CASE EVENT DATE: 2017
